FAERS Safety Report 11139651 (Version 1)
Quarter: 2015Q2

REPORT INFORMATION
  Report Type: Spontaneous
  Country: US (occurrence: US)
  Receive Date: 20150527
  Receipt Date: 20150527
  Transmission Date: 20150821
  Serious: Yes (Other)
  Sender: FDA-Public Use
  Company Number: US-MALLINCKRODT-QSC-2014-0866

PATIENT
  Sex: Female
  Weight: 9.7 kg

DRUGS (3)
  1. SABRIL [Suspect]
     Active Substance: VIGABATRIN
     Dosage: 8 ML, BID
     Dates: start: 20140506, end: 201409
  2. H.P. ACTHAR [Suspect]
     Active Substance: CORTICOTROPIN
     Indication: PRODUCT USED FOR UNKNOWN INDICATION
     Dosage: UNK
  3. SABRIL [Suspect]
     Active Substance: VIGABATRIN
     Dosage: 20 ML, BID
     Route: 048
     Dates: start: 201409

REACTIONS (3)
  - Condition aggravated [Recovering/Resolving]
  - Seizure [Recovering/Resolving]
  - Vomiting [Unknown]

NARRATIVE: CASE EVENT DATE: 2014
